FAERS Safety Report 7804285-0 (Version None)
Quarter: 2011Q4

REPORT INFORMATION
  Report Type: 
  Country: None (occurrence: None)
  Receive Date: 20111010
  Receipt Date: 20111007
  Transmission Date: 20120403
  Serious: Yes (Death, Hospitalization, Other)
  Sender: FDA-Public Use
  Company Number: PHFR2011GB04777

PATIENT
  Sex: Male

DRUGS (1)
  1. CLOZAPINE [Suspect]
     Indication: SCHIZOPHRENIA
     Dosage: 300 MG/DAY
     Route: 048
     Dates: start: 20050815, end: 20110701

REACTIONS (4)
  - METASTASES TO LIVER [None]
  - LYMPHADENOPATHY [None]
  - METASTATIC NEOPLASM [None]
  - JAUNDICE CHOLESTATIC [None]
